FAERS Safety Report 8103000-3 (Version None)
Quarter: 2012Q1

REPORT INFORMATION
  Report Type: 
  Country: None (occurrence: None)
  Receive Date: 20120127
  Receipt Date: 20120116
  Transmission Date: 20120608
  Serious: Yes (Life-Threatening, Other)
  Sender: FDA-Public Use
  Company Number: 2012P1002744

PATIENT
  Age: 42 Year
  Sex: Male

DRUGS (1)
  1. CEFTRIAXONE [Suspect]
     Indication: LEPTOSPIROSIS
     Dosage: 2 G;QD

REACTIONS (4)
  - WEIL'S DISEASE [None]
  - CONDITION AGGRAVATED [None]
  - JARISCH-HERXHEIMER REACTION [None]
  - PULMONARY ALVEOLAR HAEMORRHAGE [None]
